FAERS Safety Report 21514823 (Version 2)
Quarter: 2022Q4

REPORT INFORMATION
  Report Type: Spontaneous
  Country: US (occurrence: US)
  Receive Date: 20221027
  Receipt Date: 20221121
  Transmission Date: 20230113
  Serious: No
  Sender: FDA-Public Use
  Company Number: US-Calliditas-2022CAL00418

PATIENT
  Age: 57 Year
  Sex: Male

DRUGS (2)
  1. TARPEYO [Suspect]
     Active Substance: BUDESONIDE
     Indication: IgA nephropathy
     Dosage: 16MG (4MG CAPSULES) ONCE DAILY
     Route: 048
     Dates: start: 20220922
  2. LOSARTAN [Concomitant]
     Active Substance: LOSARTAN
     Dosage: LOSARTAN 100 MG DAILY

REACTIONS (1)
  - Pollakiuria [Not Recovered/Not Resolved]
